FAERS Safety Report 23420009 (Version 1)
Quarter: 2024Q1

REPORT INFORMATION
  Report Type: Spontaneous
  Country: US (occurrence: US)
  Receive Date: 20240119
  Receipt Date: 20240119
  Transmission Date: 20240410
  Serious: Yes (Other)
  Sender: FDA-Public Use
  Company Number: US-Merz Pharmaceuticals GmbH-24-00121

PATIENT
  Age: 70 Year
  Sex: Female

DRUGS (1)
  1. XEOMIN [Suspect]
     Active Substance: INCOBOTULINUMTOXINA
     Indication: Facial spasm
     Route: 030

REACTIONS (6)
  - Facial paralysis [Unknown]
  - Photophobia [Unknown]
  - Eye disorder [Unknown]
  - Injury corneal [Unknown]
  - Lacrimation increased [Unknown]
  - Off label use [Unknown]
